FAERS Safety Report 9191198 (Version 1)
Quarter: 2013Q1

REPORT INFORMATION
  Report Type: Spontaneous
  Country: GB (occurrence: GB)
  Receive Date: 20130326
  Receipt Date: 20130326
  Transmission Date: 20140127
  Serious: Yes (Life-Threatening, Hospitalization)
  Sender: FDA-Public Use
  Company Number: GB-ELI_LILLY_AND_COMPANY-GB201303007197

PATIENT
  Age: 59 Year
  Sex: Female
  Weight: 45 kg

DRUGS (5)
  1. ALIMTA [Suspect]
     Indication: LUNG NEOPLASM MALIGNANT
     Dosage: 700 MG, UNK
     Route: 042
     Dates: start: 20130219, end: 20130219
  2. CARBOPLATIN [Concomitant]
     Route: 042
  3. DEXAMETHASONE [Concomitant]
  4. FOLIC ACID [Concomitant]
  5. PIRITON [Concomitant]

REACTIONS (5)
  - Tachycardia [Recovered/Resolved]
  - Dyspnoea [Recovered/Resolved]
  - Hypotension [Recovered/Resolved]
  - Wheezing [Recovered/Resolved]
  - Off label use [Unknown]
